FAERS Safety Report 9132412 (Version 1)
Quarter: 2013Q1

REPORT INFORMATION
  Report Type: Spontaneous
  Country: US (occurrence: US)
  Receive Date: 20130120
  Receipt Date: 20130120
  Transmission Date: 20140127
  Serious: Yes (Other)
  Sender: FDA-Public Use
  Company Number: US-ALLERGAN-1212590US

PATIENT
  Age: 70 Year
  Sex: Male

DRUGS (1)
  1. BOTOX? [Suspect]
     Indication: BLEPHAROSPASM
     Dosage: UNK
     Dates: start: 2011, end: 201207

REACTIONS (4)
  - Dysphagia [Not Recovered/Not Resolved]
  - Speech disorder [Not Recovered/Not Resolved]
  - Injection site erythema [Not Recovered/Not Resolved]
  - Injection site bruising [Not Recovered/Not Resolved]
